FAERS Safety Report 6167627-0 (Version None)
Quarter: 2009Q2

REPORT INFORMATION
  Report Type: 
  Country: None (occurrence: None)
  Receive Date: 20090424
  Receipt Date: 20090410
  Transmission Date: 20091009
  Serious: Yes (Life-Threatening, Hospitalization)
  Sender: FDA-Public Use
  Company Number: FR-GENENTECH-281241

PATIENT
  Sex: Male

DRUGS (7)
  1. MABTHERA [Suspect]
     Indication: WALDENSTROM'S MACROGLOBULINAEMIA
     Dosage: 350 MG/M2, UNK
     Route: 042
     Dates: end: 20080901
  2. PLAVIX [Suspect]
     Indication: DRUG USE FOR UNKNOWN INDICATION
     Dosage: 75 MG, QD
     Route: 048
     Dates: start: 20081001, end: 20090308
  3. RHAMNUS PURSHIANA [Suspect]
     Indication: GASTROINTESTINAL MOTILITY DISORDER
     Dosage: UNK
     Route: 048
     Dates: start: 20090201, end: 20090308
  4. NEXIUM [Suspect]
     Indication: DRUG USE FOR UNKNOWN INDICATION
     Dosage: 20 MG, QD
     Route: 048
     Dates: start: 20090215, end: 20090308
  5. CARDEGIC [Concomitant]
     Indication: DRUG USE FOR UNKNOWN INDICATION
  6. TAHOR [Concomitant]
     Indication: DRUG USE FOR UNKNOWN INDICATION
  7. DETENSIEL [Concomitant]
     Indication: DRUG USE FOR UNKNOWN INDICATION

REACTIONS (2)
  - AGRANULOCYTOSIS [None]
  - SEPSIS [None]
